FAERS Safety Report 20217389 (Version 2)
Quarter: 2022Q2

REPORT INFORMATION
  Report Type: Spontaneous
  Country: US (occurrence: US)
  Receive Date: 20211222
  Receipt Date: 20220406
  Transmission Date: 20220721
  Serious: Yes (Hospitalization, Other)
  Sender: FDA-Public Use
  Company Number: US-BAYER-2021A271189

PATIENT
  Age: 71 Year
  Sex: Male
  Weight: 90.5 kg

DRUGS (7)
  1. BAYER LOW DOSE [Suspect]
     Active Substance: ASPIRIN
     Indication: Coronary artery disease
     Dosage: 0.2 MG, QD
     Route: 048
     Dates: start: 20210806, end: 20211204
  2. PF 06801591 [Concomitant]
     Indication: Bladder cancer
     Dosage: 300 MG, Q4WK
     Route: 058
     Dates: start: 20210928
  3. BCG VACCINE [Concomitant]
     Active Substance: BCG VACCINE
     Indication: Bladder cancer
     Dosage: 50 ML
     Dates: start: 20210929
  4. NIFEDIPINE [Concomitant]
     Active Substance: NIFEDIPINE
     Indication: Hypertension
     Dosage: UNK
     Dates: start: 2015
  5. ROSUVASTATIN CALCIUM [Concomitant]
     Active Substance: ROSUVASTATIN CALCIUM
     Indication: Coronary artery disease
     Dosage: UNK
     Dates: start: 2019
  6. METOPROLOL TARTRATE [Concomitant]
     Active Substance: METOPROLOL TARTRATE
     Indication: Hypertension
     Dosage: UNK
     Dates: start: 2001
  7. WEI SU [Concomitant]
     Indication: Abdominal pain
     Dosage: UNK
     Dates: start: 20211201, end: 20211205

REACTIONS (1)
  - Gastrointestinal haemorrhage [Recovered/Resolved]

NARRATIVE: CASE EVENT DATE: 20211204
